FAERS Safety Report 5999750-5 (Version None)
Quarter: 2008Q4

REPORT INFORMATION
  Report Type: 
  Country: None (occurrence: None)
  Receive Date: 20081215
  Receipt Date: 20081205
  Transmission Date: 20090506
  Serious: Yes (Hospitalization)
  Sender: FDA-Public Use
  Company Number: BR-PFIZER INC-2008074506

PATIENT

DRUGS (16)
  1. BLINDED *PLACEBO [Suspect]
     Dosage: UNK
     Route: 048
     Dates: start: 20080710
  2. CELECOXIB [Suspect]
     Dosage: UNK
     Route: 048
     Dates: start: 20080710
  3. BLINDED IBUPROFEN [Suspect]
     Dosage: UNK
     Route: 048
     Dates: start: 20080710
  4. BLINDED NAPROXEN [Suspect]
     Dosage: UNK
     Route: 048
     Dates: start: 20080710
  5. ESOMEPRAZOLE [Concomitant]
     Route: 048
  6. CAPTOPRIL [Concomitant]
     Route: 048
     Dates: start: 20030101
  7. ATENOLOL [Concomitant]
     Route: 048
     Dates: start: 20070701
  8. METFORMIN [Concomitant]
     Route: 048
     Dates: start: 19980101
  9. HYDROCHLOROTHIAZIDE [Concomitant]
     Route: 048
     Dates: start: 19780101
  10. AMITRIPTYLINE [Concomitant]
     Route: 048
     Dates: start: 20030101
  11. AMLODIPINE [Concomitant]
     Route: 048
     Dates: start: 20080301
  12. SIMVASTATIN [Concomitant]
     Route: 048
     Dates: start: 20060101
  13. ISORDIL [Concomitant]
     Route: 048
     Dates: start: 20060101
  14. CIPROFLOXACIN [Concomitant]
     Route: 048
     Dates: start: 20080803
  15. ACETYLSALICYLIC ACID [Concomitant]
     Route: 048
     Dates: start: 20030101
  16. GLIMEPIRIDE [Concomitant]
     Route: 048
     Dates: start: 20080301

REACTIONS (1)
  - INFECTED SKIN ULCER [None]
